FAERS Safety Report 9023332 (Version 1)
Quarter: 2013Q1

REPORT INFORMATION
  Report Type: Spontaneous
  Country: US (occurrence: US)
  Receive Date: 20130120
  Receipt Date: 20130120
  Transmission Date: 20140127
  Serious: Yes (Hospitalization, Other)
  Sender: FDA-Public Use
  Company Number: US-009507513-0605USA03725

PATIENT
  Sex: Female

DRUGS (11)
  1. SINGULAIR [Suspect]
     Indication: SINUSITIS
     Dosage: UNK MG, UNK
     Route: 048
  2. KETEK [Suspect]
     Route: 048
  3. FLOVENT [Concomitant]
  4. PROZAC [Concomitant]
  5. PREDNISONE [Concomitant]
  6. VITAMIN E [Concomitant]
  7. ACTIVELLA [Concomitant]
     Dosage: 1MG/5MG
  8. HERBS (UNSPECIFIED) [Concomitant]
  9. NASACORT [Concomitant]
  10. FLONASE [Concomitant]
  11. ADVAIR [Concomitant]

REACTIONS (33)
  - Renal cyst [Unknown]
  - Hepatic enzyme increased [Unknown]
  - Hepatomegaly [Unknown]
  - Haemoglobin decreased [Unknown]
  - Alanine aminotransferase increased [Unknown]
  - Aspartate aminotransferase increased [Unknown]
  - Asthenia [Unknown]
  - Atelectasis [Unknown]
  - Blood albumin decreased [Unknown]
  - Blood bilirubin increased [Unknown]
  - Blood calcium decreased [Unknown]
  - Blood sodium decreased [Unknown]
  - Chromaturia [Unknown]
  - Decreased appetite [Unknown]
  - Diarrhoea [Unknown]
  - Dizziness [Unknown]
  - Enterocolitis infectious [Unknown]
  - Abdominal pain [Unknown]
  - International normalised ratio decreased [Unknown]
  - Red blood cell count decreased [Unknown]
  - Renal cyst [Unknown]
  - Rash [Unknown]
  - Pyrexia [Unknown]
  - Pruritus [Unknown]
  - Eosinophil count increased [Unknown]
  - Loss of consciousness [Unknown]
  - Haematocrit decreased [Unknown]
  - Hepatocellular injury [Unknown]
  - Hepatitis [Unknown]
  - Hepatic lesion [Unknown]
  - Hepatic enzyme increased [Unknown]
  - Renal injury [Unknown]
  - Nausea [Unknown]
